FAERS Safety Report 12092595 (Version 1)
Quarter: 2016Q1

REPORT INFORMATION
  Report Type: Spontaneous
  Country: US (occurrence: US)
  Receive Date: 20160219
  Receipt Date: 20160219
  Transmission Date: 20160526
  Serious: Yes (Hospitalization)
  Sender: FDA-Public Use
  Company Number: US-ROCHE-1659017

PATIENT
  Sex: Female

DRUGS (4)
  1. XELODA [Suspect]
     Active Substance: CAPECITABINE
     Route: 048
  2. XELODA [Suspect]
     Active Substance: CAPECITABINE
     Dosage: 7 DAYS ON 7 DAYS OFF
     Route: 048
     Dates: start: 20150917
  3. XELODA [Suspect]
     Active Substance: CAPECITABINE
     Indication: NEOPLASM MALIGNANT
     Dosage: 7 ON 7 OFF; 500 MG 4 TWICE A DAY
     Route: 048
     Dates: start: 20150827
  4. XELODA [Suspect]
     Active Substance: CAPECITABINE
     Dosage: 4 TABLET.
     Route: 048
     Dates: start: 20150827

REACTIONS (6)
  - Dry skin [Not Recovered/Not Resolved]
  - Erythema [Unknown]
  - Seizure [Unknown]
  - Feeling hot [Unknown]
  - Skin exfoliation [Not Recovered/Not Resolved]
  - Peripheral swelling [Unknown]
